FAERS Safety Report 9722703 (Version 2)
Quarter: 2013Q4

REPORT INFORMATION
  Report Type: Spontaneous
  Country: US (occurrence: US)
  Receive Date: 20131202
  Receipt Date: 20131216
  Transmission Date: 20140711
  Serious: No
  Sender: FDA-Public Use
  Company Number: US-PFIZER INC-2013340975

PATIENT
  Age: 63 Year
  Sex: Female

DRUGS (6)
  1. ASPIRIN [Suspect]
     Dosage: UNK
  2. SERTRALINE HYDROCHLORIDE [Concomitant]
     Dosage: UNK
  3. GLIMEPIRIDE [Concomitant]
     Dosage: UNK
  4. CYMBALTA [Concomitant]
     Dosage: UNK
  5. NUCYNTA ER [Concomitant]
     Dosage: UNK
  6. LANTUS [Concomitant]
     Dosage: UNK

REACTIONS (1)
  - Drug hypersensitivity [Unknown]
